FAERS Safety Report 8967561 (Version 3)
Quarter: 2013Q1

REPORT INFORMATION
  Report Type: Report from Study
  Country: AU (occurrence: AU)
  Receive Date: 20121214
  Receipt Date: 20130131
  Transmission Date: 20140127
  Serious: Yes (Other)
  Sender: FDA-Public Use
  Company Number: AU-AMGEN-AUSCT2012079746

PATIENT
  Age: 75 Year
  Sex: Female

DRUGS (15)
  1. DENOSUMAB [Suspect]
     Indication: OSTEOPOROSIS POSTMENOPAUSAL
     Dosage: UNK UNK, Q6MO
     Route: 058
     Dates: start: 20071211
  2. EXELON [Concomitant]
     Indication: DEMENTIA ALZHEIMER^S TYPE
     Dosage: 5 MG, QD
     Route: 062
     Dates: start: 201109
  3. OSTELIN [Concomitant]
     Indication: OSTEOPOROSIS
     Dosage: 1000 IU, BID
     Route: 048
     Dates: start: 20051210
  4. CALTRATE [Concomitant]
     Indication: OSTEOPOROSIS
     Dosage: 600 MG, BID
     Route: 048
     Dates: start: 20051210
  5. MIRTAZAPINE [Concomitant]
     Indication: ANXIETY
     Dosage: 30 MG, QD
     Route: 048
     Dates: start: 20110121
  6. METOPROLOL TARTRATE [Concomitant]
     Indication: ATRIAL FIBRILLATION
     Dosage: 100 MG, BID
     Route: 048
     Dates: start: 201104
  7. WARFARIN [Concomitant]
     Indication: ATRIAL FIBRILLATION
     Dosage: UNK UNK, QD
     Route: 048
     Dates: start: 201104
  8. DIAZEPAM [Concomitant]
     Dosage: 2 MG, UNK
  9. DOXY 100 [Concomitant]
     Dosage: 100 MG, QD
  10. EFUDIX [Concomitant]
     Route: 061
  11. HYDROCORTISONE [Concomitant]
     Dosage: UNK UNK, AS NECESSARY
     Route: 061
  12. MAGNESIUM ASPARTATE [Concomitant]
     Dosage: 500 MG, QD
  13. MULTI B-FORTE [Concomitant]
  14. SYMBICORT [Concomitant]
     Dosage: UNK UNK, BID
  15. MEGA B [Concomitant]

REACTIONS (1)
  - Chronic lymphocytic leukaemia [Not Recovered/Not Resolved]
